FAERS Safety Report 9367071 (Version 1)
Quarter: 2013Q2

REPORT INFORMATION
  Report Type: Spontaneous
  Country: US (occurrence: US)
  Receive Date: 20130625
  Receipt Date: 20130625
  Transmission Date: 20140414
  Serious: Yes (Death)
  Sender: FDA-Public Use
  Company Number: US-JNJFOC-20130614510

PATIENT
  Age: 2 Year
  Sex: Male
  Weight: 10.4 kg

DRUGS (7)
  1. DOXORUBICIN [Suspect]
     Indication: NEUROBLASTOMA
     Dosage: DAY 0 AND DAY 1, 2 CYCLES
     Route: 042
  2. CYCLOPHOSPHAMIDE [Suspect]
     Indication: NEUROBLASTOMA
     Dosage: 2G/M2/DAY, OVER 4 HOUR WITH MESNA ON DAYS 1 AND 2
     Route: 065
  3. VINCRISTINE [Suspect]
     Indication: NEUROBLASTOMA
     Dosage: DAY 0 AND DAY 1, 2 CYCLES
     Route: 065
  4. CARBOPLATIN [Suspect]
     Indication: NEUROBLASTOMA
     Dosage: 50% OF ASSIGNED DOSE/DAY OVER 1 HOUR ON DAYS 1 AND 2
     Route: 042
  5. CARBOPLATIN [Suspect]
     Indication: NEUROBLASTOMA
     Dosage: 50% OF ASSIGNED DOSE/DAY OVER 1 HOUR ON DAYS 1 AND 2
     Route: 042
  6. ETOPOSIDE [Suspect]
     Indication: NEUROBLASTOMA
     Dosage: OVER 4 HR ON DAYS 1-3
     Route: 042
  7. G-CSF [Suspect]
     Indication: NEUROBLASTOMA
     Dosage: 5 MCG/KG/DAY THRU NADIR, ESCALATE TO 10MCG/KG/DAY FOR PBSC COLLECTION
     Route: 065

REACTIONS (2)
  - Pneumonia [Fatal]
  - Off label use [Unknown]
